FAERS Safety Report 8177589-2 (Version None)
Quarter: 2012Q1

REPORT INFORMATION
  Report Type: 
  Country: None (occurrence: None)
  Receive Date: 20120301
  Receipt Date: 20120223
  Transmission Date: 20120608
  Serious: Yes (Hospitalization)
  Sender: FDA-Public Use
  Company Number: PHEH2012US004571

PATIENT
  Sex: Male

DRUGS (3)
  1. STALEVO 100 [Suspect]
     Dosage: UNK
  2. AMANTADINE HCL [Suspect]
     Dosage: 300 MG, UNK
  3. NEORAL [Suspect]
     Indication: RENAL TRANSPLANT
     Dosage: 50 MG, BID
     Route: 048

REACTIONS (3)
  - HALLUCINATION [None]
  - FALL [None]
  - INJURY [None]
